FAERS Safety Report 8033117-3 (Version None)
Quarter: 2012Q1

REPORT INFORMATION
  Report Type: 
  Country: None (occurrence: None)
  Receive Date: 20120110
  Receipt Date: 20120110
  Transmission Date: 20120608
  Serious: Yes (Hospitalization)
  Sender: FDA-Public Use
  Company Number: None

PATIENT
  Age: 78 Year
  Sex: Male
  Weight: 75 kg

DRUGS (2)
  1. ^ [Concomitant]
  2. CARFILZOMIB [Suspect]
     Indication: ACUTE MYELOID LEUKAEMIA
     Dosage: 20 MG/M2, 36 MG/M2, 45 MG/M2
     Route: 042
     Dates: start: 20111229, end: 20120106

REACTIONS (6)
  - HEAD INJURY [None]
  - SUBDURAL HAEMATOMA [None]
  - FALL [None]
  - CRANIOCEREBRAL INJURY [None]
  - SYNCOPE [None]
  - THROMBOCYTOPENIA [None]
